FAERS Safety Report 7131780-2 (Version None)
Quarter: 2010Q4

REPORT INFORMATION
  Report Type: 
  Country: None (occurrence: None)
  Receive Date: 20101202
  Receipt Date: 20101122
  Transmission Date: 20110411
  Serious: No
  Sender: FDA-Public Use
  Company Number: US-BIOGENIDEC-2010BI041599

PATIENT
  Age: 54 Year
  Sex: Female

DRUGS (2)
  1. AVONEX [Suspect]
     Indication: MULTIPLE SCLEROSIS
     Route: 030
     Dates: start: 20100901
  2. PAIN PILLS (NOS) [Concomitant]
     Indication: ARTHROPATHY

REACTIONS (2)
  - OEDEMA PERIPHERAL [None]
  - RASH ERYTHEMATOUS [None]
